FAERS Safety Report 21791350 (Version 10)
Quarter: 2023Q2

REPORT INFORMATION
  Report Type: Report from Study
  Country: CA (occurrence: CA)
  Receive Date: 20221228
  Receipt Date: 20230517
  Transmission Date: 20230721
  Serious: Yes (Other)
  Sender: FDA-Public Use
  Company Number: CA-JNJFOC-20221253544

PATIENT
  Age: 58 Year
  Sex: Male
  Weight: 121 kg

DRUGS (2)
  1. STELARA [Suspect]
     Active Substance: USTEKINUMAB
     Indication: Crohn^s disease
     Route: 058
     Dates: start: 20180110
  2. STELARA [Suspect]
     Active Substance: USTEKINUMAB
     Indication: Ankylosing spondylitis

REACTIONS (14)
  - Haematochezia [Not Recovered/Not Resolved]
  - Intestinal haemorrhage [Not Recovered/Not Resolved]
  - Constipation [Recovered/Resolved]
  - Sleep apnoea syndrome [Not Recovered/Not Resolved]
  - Bloody discharge [Not Recovered/Not Resolved]
  - Fistula [Unknown]
  - Illness [Recovering/Resolving]
  - Pain in extremity [Not Recovered/Not Resolved]
  - Inflammation [Unknown]
  - Arthralgia [Not Recovered/Not Resolved]
  - Back pain [Unknown]
  - Vomiting [Recovered/Resolved]
  - Diarrhoea [Recovering/Resolving]
  - Drug ineffective [Unknown]

NARRATIVE: CASE EVENT DATE: 20220101
